FAERS Safety Report 9570941 (Version 1)
Quarter: 2013Q4

REPORT INFORMATION
  Report Type: Spontaneous
  Country: IN (occurrence: IN)
  Receive Date: 20131001
  Receipt Date: 20131001
  Transmission Date: 20140711
  Serious: Yes (Hospitalization, Other)
  Sender: FDA-Public Use
  Company Number: IN-SUN PHARMACEUTICAL INDUSTRIES LTD-2013SUN04757

PATIENT
  Age: 46 Year
  Sex: Female
  Weight: 83 kg

DRUGS (8)
  1. QUETIAPINE FUMARATE 300MG TABLETS [Suspect]
     Indication: ACUTE PSYCHOSIS
     Dosage: 300 MG, OD
     Route: 065
  2. QUETIAPINE FUMARATE 300MG TABLETS [Suspect]
     Dosage: 600 MG, OD
     Route: 065
  3. OLANZAPINE 20 MG TABLETS [Suspect]
     Indication: ACUTE PSYCHOSIS
     Dosage: 20 MG, OD
     Route: 065
  4. CLONAZEPAM 2 MG TABLET [Suspect]
     Indication: ACUTE PSYCHOSIS
     Dosage: 6 MG, OD
     Route: 065
  5. RISPERIDONE [Suspect]
     Indication: ACUTE PSYCHOSIS
     Dosage: 3 MG, OD
     Route: 065
  6. TRIFLUPERAZINE [Suspect]
     Indication: ACUTE PSYCHOSIS
     Dosage: 15 MG, OD
     Route: 065
  7. ZIPRASIDONE [Suspect]
     Indication: ACUTE PSYCHOSIS
     Dosage: 120 MG, OD
     Route: 065
  8. SERTRALINE [Suspect]
     Indication: ACUTE PSYCHOSIS
     Dosage: 100 MG, OD

REACTIONS (4)
  - Somatoform disorder pregnancy [Recovered/Resolved]
  - Metabolic syndrome [Recovered/Resolved]
  - Obesity [Recovered/Resolved]
  - Hyperprolactinaemia [Recovered/Resolved]
